FAERS Safety Report 24163292 (Version 1)
Quarter: 2024Q3

REPORT INFORMATION
  Report Type: Other
  Country: AU (occurrence: AU)
  Receive Date: 20240801
  Receipt Date: 20240801
  Transmission Date: 20241017
  Serious: Yes (Hospitalization)
  Sender: AIRGAS
  Company Number: AU-MLMSERVICE-20200424-2270302-1

PATIENT
  Age: 3 Year
  Sex: Male

DRUGS (3)
  1. NITROUS OXIDE [Suspect]
     Active Substance: NITROUS OXIDE
     Indication: General anaesthesia
  2. PROPOFOL [Suspect]
     Active Substance: PROPOFOL
  3. SEVOFLURANE [Suspect]
     Active Substance: SEVOFLURANE

REACTIONS (1)
  - Tachycardia [Recovered/Resolved]
